FAERS Safety Report 10013028 (Version 1)
Quarter: 2014Q1

REPORT INFORMATION
  Report Type: Spontaneous
  Country: US (occurrence: US)
  Receive Date: 20140314
  Receipt Date: 20140314
  Transmission Date: 20141002
  Serious: No
  Sender: FDA-Public Use
  Company Number: US-ASTRAZENECA-2013SE78156

PATIENT
  Age: 56 Year
  Sex: Female
  Weight: 56.7 kg

DRUGS (4)
  1. ZOMIG NASAL SPRAY [Suspect]
     Indication: MIGRAINE
     Dosage: 2.5 MG 1 DOSE THEN ANOTHER DOSE 4 HOURS LATER IF NECESSARY
     Route: 045
     Dates: start: 2009
  2. IMITREX [Concomitant]
     Indication: HEADACHE
     Dosage: UNKNOWN
     Dates: end: 20131019
  3. ZOLOFT [Concomitant]
     Indication: DEPRESSION
     Route: 048
  4. OXYCODONE [Concomitant]
     Indication: PAIN
     Route: 048

REACTIONS (5)
  - Nasal dryness [Not Recovered/Not Resolved]
  - Dry throat [Not Recovered/Not Resolved]
  - Respiratory tract congestion [Unknown]
  - Headache [Not Recovered/Not Resolved]
  - Chest discomfort [Not Recovered/Not Resolved]
